FAERS Safety Report 9678861 (Version 3)
Quarter: 2013Q4

REPORT INFORMATION
  Report Type: Spontaneous
  Country: US (occurrence: US)
  Receive Date: 20131108
  Receipt Date: 20131206
  Transmission Date: 20140711
  Serious: No
  Sender: FDA-Public Use
  Company Number: US-009507513-1311USA002609

PATIENT
  Sex: Female

DRUGS (2)
  1. ASMANEX TWISTHALER [Suspect]
     Dosage: 1 DF, BID; 1 INHALATION TWICE DAILY
     Route: 055
     Dates: end: 2013
  2. ASMANEX TWISTHALER [Suspect]
     Dosage: 1 DF, HS; 1 INHALATION DAILY AT NIGHT
     Route: 055
     Dates: start: 2013

REACTIONS (5)
  - Fatigue [Unknown]
  - Drug dose omission [Unknown]
  - Product quality issue [Unknown]
  - Underdose [Unknown]
  - Wrong technique in drug usage process [Unknown]
